FAERS Safety Report 25025086 (Version 1)
Quarter: 2025Q1

REPORT INFORMATION
  Report Type: Spontaneous
  Country: US (occurrence: None)
  Receive Date: 20250228
  Receipt Date: 20250228
  Transmission Date: 20250409
  Serious: Yes (Other)
  Sender: FDA-CTU
  Company Number: None

PATIENT
  Age: 65 Year
  Sex: Male
  Weight: 104 kg

DRUGS (1)
  1. BIVIGAM [Suspect]
     Active Substance: HUMAN IMMUNOGLOBULIN G
     Indication: Polymyositis
     Route: 041
     Dates: start: 20250227, end: 20250227

REACTIONS (1)
  - Urticaria [None]

NARRATIVE: CASE EVENT DATE: 20250227
